FAERS Safety Report 8264085-7 (Version None)
Quarter: 2012Q2

REPORT INFORMATION
  Report Type: 
  Country: None (occurrence: None)
  Receive Date: 20120406
  Receipt Date: 20120329
  Transmission Date: 20120825
  Serious: No
  Sender: FDA-Public Use
  Company Number: US-BIOGENIDEC-2012BI011236

PATIENT
  Age: 31 Year
  Sex: Male

DRUGS (1)
  1. TYSABRI [Suspect]
     Indication: MULTIPLE SCLEROSIS
     Route: 042
     Dates: start: 20110505

REACTIONS (7)
  - INFLUENZA LIKE ILLNESS [None]
  - MEMORY IMPAIRMENT [None]
  - HEMIPARESIS [None]
  - VISUAL IMPAIRMENT [None]
  - POOR VENOUS ACCESS [None]
  - FEELING ABNORMAL [None]
  - HYPOTENSION [None]
